FAERS Safety Report 5377213-8 (Version None)
Quarter: 2007Q2

REPORT INFORMATION
  Report Type: 
  Country: None (occurrence: None)
  Receive Date: 20070629
  Receipt Date: 20070629
  Transmission Date: 20071010
  Serious: Yes (Hospitalization)
  Sender: FDA-Public Use
  Company Number: None

PATIENT
  Age: 68 Year
  Sex: Female
  Weight: 85.7298 kg

DRUGS (3)
  1. PHOSPHOSODA GINGER LEMON [Suspect]
     Indication: COLONOSCOPY
     Dosage: 45 ML; PO
     Route: 048
     Dates: start: 20000604, end: 20000607
  2. PHOSPHOSODA GINGER LEMON [Suspect]
     Indication: HERNIA REPAIR
     Dosage: 45 ML; PO
     Route: 048
     Dates: start: 20000604, end: 20000607
  3. FLEET ENEMA (SODIUM PHOSPHATE) [Suspect]
     Dosage: 133 ML;HS;RTL
     Route: 054
     Dates: start: 20000604, end: 20000604

REACTIONS (13)
  - ANAESTHETIC COMPLICATION [None]
  - CHOLELITHIASIS [None]
  - DEHYDRATION [None]
  - DIVERTICULUM [None]
  - FEMUR FRACTURE [None]
  - FRACTURE DELAYED UNION [None]
  - HAEMORRHOIDS [None]
  - HEPATIC STEATOSIS [None]
  - HERNIA REPAIR [None]
  - INFECTION [None]
  - RENAL CYST [None]
  - RENAL FAILURE ACUTE [None]
  - RENAL TUBULAR NECROSIS [None]
